FAERS Safety Report 8642377 (Version 4)
Quarter: 2012Q4

REPORT INFORMATION
  Report Type: 
  Country: JP (occurrence: JP)
  Receive Date: 20120628
  Receipt Date: 20121210
  Transmission Date: 20130627
  Serious: Yes (Hospitalization)
  Sender: FDA-Public Use
  Company Number: JP-MSD-1206USA04113

PATIENT
  Age: 73 Year
  Sex: Female

DRUGS (5)
  1. FOSAMAC TABLETS 35MG [Suspect]
     Indication: PROPHYLAXIS
     Dosage: 35 mg, QW
     Route: 048
     Dates: end: 20111025
  2. FOSAMAC TABLETS 35MG [Suspect]
     Indication: OSTEOPOROSIS
  3. LIPITOR [Concomitant]
     Indication: HYPERLIPIDAEMIA
     Dosage: 2.5 mg, qd
     Route: 048
  4. MAGMITT [Concomitant]
     Indication: CONSTIPATION
     Dosage: 330 mg, bid
     Route: 048
  5. LENDORMIN [Concomitant]
     Indication: INSOMNIA
     Dosage: 0.25 mg, qd
     Route: 048

REACTIONS (1)
  - Osteomyelitis [Recovering/Resolving]
